FAERS Safety Report 10243047 (Version 1)
Quarter: 2014Q2

REPORT INFORMATION
  Report Type: Spontaneous
  Country: US (occurrence: US)
  Receive Date: 20140618
  Receipt Date: 20140618
  Transmission Date: 20141212
  Serious: Yes (Other)
  Sender: FDA-Public Use
  Company Number: 2014SP003220

PATIENT
  Age: 56 Year
  Sex: Female
  Weight: 113.4 kg

DRUGS (2)
  1. DOXYCYCLINE [Suspect]
     Indication: PRODUCT USED FOR UNKNOWN INDICATION
     Dates: start: 20140529
  2. PREGABALIN [Suspect]
     Indication: FIBROMYALGIA
     Dates: start: 20140424

REACTIONS (5)
  - Oral candidiasis [Not Recovered/Not Resolved]
  - Ageusia [Not Recovered/Not Resolved]
  - Bronchitis [Not Recovered/Not Resolved]
  - Weight increased [Not Recovered/Not Resolved]
  - Feeling abnormal [Not Recovered/Not Resolved]
